FAERS Safety Report 6372734-3 (Version None)
Quarter: 2009Q3

REPORT INFORMATION
  Report Type: 
  Country: None (occurrence: None)
  Receive Date: 20090924
  Receipt Date: 20081110
  Transmission Date: 20100115
  Serious: No
  Sender: FDA-Public Use
  Company Number: US-ASTRAZENECA-2008UW25194

PATIENT
  Age: 64 Year
  Sex: Male

DRUGS (5)
  1. SEROQUEL [Suspect]
     Dosage: 100 MG
     Route: 048
     Dates: start: 20080701
  2. SEROQUEL [Suspect]
     Dosage: 50 MG
     Route: 048
  3. SEROQUEL [Suspect]
     Dosage: 200 MG
     Route: 048
  4. CYMBALTA [Concomitant]
  5. AVODART [Concomitant]

REACTIONS (3)
  - DYSURIA [None]
  - ILL-DEFINED DISORDER [None]
  - SOMNOLENCE [None]
